FAERS Safety Report 4848089-X (Version None)
Quarter: 2005Q4

REPORT INFORMATION
  Report Type: 
  Country: None (occurrence: None)
  Receive Date: 20051206
  Receipt Date: 20051121
  Transmission Date: 20060501
  Serious: Yes (Hospitalization)
  Sender: FDA-Public Use
  Company Number: US016413

PATIENT
  Age: 60 Year
  Sex: Female

DRUGS (2)
  1. TRISENOX [Suspect]
     Indication: ACUTE PROMYELOCYTIC LEUKAEMIA
     Dosage: 8.85 MG QD INTRAVENOUS DRIP
     Route: 041
     Dates: start: 20050613, end: 20050811
  2. TRISENOX [Suspect]
     Indication: ACUTE PROMYELOCYTIC LEUKAEMIA
     Dosage: 8.85 MG QD INTRAVENOUS DRIP
     Route: 041
     Dates: start: 20050927, end: 20051031

REACTIONS (7)
  - BLOOD CREATINE PHOSPHOKINASE INCREASED [None]
  - HAEMOGLOBIN DECREASED [None]
  - HERPES ZOSTER [None]
  - LEUKOPENIA [None]
  - NEUTROPENIA [None]
  - NEUTROPHIL COUNT DECREASED [None]
  - WHITE BLOOD CELL COUNT DECREASED [None]
